FAERS Safety Report 5311464-3 (Version None)
Quarter: 2007Q1

REPORT INFORMATION
  Report Type: 
  Country: None (occurrence: None)
  Receive Date: 20070201
  Receipt Date: 20061211
  Transmission Date: 20070707
  Serious: No
  Sender: FDA-Public Use
  Company Number: 259173

PATIENT
  Age: 78 Year
  Sex: Male

DRUGS (2)
  1. LEVEMIR [Suspect]
     Indication: DIABETES MELLITUS INSULIN-DEPENDENT
     Dates: start: 20060501
  2. PLAVIX [Concomitant]

REACTIONS (1)
  - INJECTION SITE BRUISING [None]
